FAERS Safety Report 8120356-6 (Version None)
Quarter: 2012Q1

REPORT INFORMATION
  Report Type: 
  Country: None (occurrence: None)
  Receive Date: 20120207
  Receipt Date: 20120202
  Transmission Date: 20120608
  Serious: Yes (Hospitalization)
  Sender: FDA-Public Use
  Company Number: US-GLAXOSMITHKLINE-B0723742A

PATIENT
  Age: 63 Year
  Sex: Female

DRUGS (1)
  1. AVANDIA [Suspect]
     Indication: DIABETES MELLITUS
     Dosage: 8MG PER DAY
     Route: 048
     Dates: start: 19990101, end: 20080101

REACTIONS (11)
  - CORONARY ARTERY OCCLUSION [None]
  - BACK PAIN [None]
  - PANCREATITIS [None]
  - RENAL ARTERY STENOSIS [None]
  - FRACTURE [None]
  - CARDIAC FAILURE [None]
  - NEPHROPATHY [None]
  - GALLBLADDER DISORDER [None]
  - RENAL ATROPHY [None]
  - MYOCARDIAL INFARCTION [None]
  - FLANK PAIN [None]
